FAERS Safety Report 5072692-8 (Version None)
Quarter: 2006Q3

REPORT INFORMATION
  Report Type: 
  Country: None (occurrence: None)
  Receive Date: 20060807
  Receipt Date: 20060727
  Transmission Date: 20061208
  Serious: Yes (Hospitalization)
  Sender: FDA-Public Use
  Company Number: FR-ROCHE-457195

PATIENT
  Age: 53 Year
  Sex: Male
  Weight: 66 kg

DRUGS (2)
  1. ROCEPHIN [Suspect]
     Indication: LUNG ABSCESS
     Dosage: FORM REPORTED AS INJECTABLE SOLUTION.
     Route: 042
     Dates: start: 20060602, end: 20060620
  2. FLAGYL [Suspect]
     Indication: LUNG ABSCESS
     Dosage: FORM REPORTED AS INJECTABLE SOLUTION.
     Route: 042
     Dates: start: 20060603, end: 20060620

REACTIONS (1)
  - PANCREATITIS ACUTE [None]
